FAERS Safety Report 22541959 (Version 5)
Quarter: 2024Q1

REPORT INFORMATION
  Report Type: Spontaneous
  Country: EC (occurrence: EC)
  Receive Date: 20230609
  Receipt Date: 20240209
  Transmission Date: 20240410
  Serious: Yes (Other)
  Sender: FDA-Public Use
  Company Number: EC-PFIZER INC-PV202300100748

PATIENT
  Age: 19 Year
  Sex: Male

DRUGS (1)
  1. SOMATROPIN [Suspect]
     Active Substance: SOMATROPIN
     Dosage: UNK
     Route: 058
     Dates: end: 202003

REACTIONS (5)
  - Bone development abnormal [Unknown]
  - Autoimmune disorder [Unknown]
  - Immune system disorder [Unknown]
  - Growth disorder [Unknown]
  - Epistaxis [Unknown]
